FAERS Safety Report 14235343 (Version 1)
Quarter: 2017Q4

REPORT INFORMATION
  Report Type: Spontaneous
  Country: US (occurrence: US)
  Receive Date: 20171129
  Receipt Date: 20171129
  Transmission Date: 20180321
  Serious: No
  Sender: FDA-Public Use
  Company Number: US-009507513-1711USA007978

PATIENT
  Sex: Female
  Weight: 95.24 kg

DRUGS (2)
  1. NEXPLANON [Suspect]
     Active Substance: ETONOGESTREL
     Dosage: 1 ROD (68 MG) PER 3 YEARS
     Route: 059
     Dates: start: 20161027, end: 20171116
  2. NEXPLANON [Suspect]
     Active Substance: ETONOGESTREL
     Dosage: 1 ROD (68 MG) PER 3 YEARS
     Route: 059
     Dates: start: 20171016

REACTIONS (2)
  - No adverse event [Unknown]
  - Device kink [Recovered/Resolved]
